FAERS Safety Report 8940242 (Version 1)
Quarter: 2012Q4

REPORT INFORMATION
  Report Type: Report from Study
  Country: US (occurrence: US)
  Receive Date: 20121130
  Receipt Date: 20121130
  Transmission Date: 20130627
  Serious: Yes (Hospitalization)
  Sender: FDA-Public Use
  Company Number: US-BAXTER-2012BAX025262

PATIENT
  Age: 50 Year
  Sex: Female
  Weight: 64.6 kg

DRUGS (11)
  1. CYCLOPHOSPHAMIDE FOR INJECTION, USP [Suspect]
     Indication: BREAST CANCER
     Route: 065
  2. CYCLOPHOSPHAMIDE FOR INJECTION, USP [Suspect]
     Route: 065
     Dates: start: 20091014
  3. BEVACIZUMAB [Suspect]
     Indication: BREAST CANCER
     Route: 042
     Dates: start: 20090805
  4. BEVACIZUMAB [Suspect]
     Route: 042
     Dates: start: 20091014
  5. DOXORUBICIN [Suspect]
     Indication: BREAST CANCER
     Route: 065
  6. DOXORUBICIN [Suspect]
     Route: 065
     Dates: start: 20091014
  7. LORAZEPAM [Concomitant]
     Indication: ANXIETY ATTACK
     Route: 048
     Dates: start: 20090805
  8. PROCHLORPERAZINE [Concomitant]
     Indication: NAUSEA
     Dates: start: 20090805
  9. PROCHLORPERAZINE [Concomitant]
     Indication: NAUSEA
     Route: 065
  10. DEXAMETHASONE [Concomitant]
     Indication: DRUG USE FOR UNKNOWN INDICATION
     Route: 048
     Dates: start: 20090930
  11. PEGFILGRASTIM [Concomitant]
     Indication: DRUG USE FOR UNKNOWN INDICATION
     Route: 065
     Dates: start: 20090811

REACTIONS (3)
  - Pyrexia [Unknown]
  - Fatigue [Unknown]
  - Lung infiltration [Unknown]
